FAERS Safety Report 8163818 (Version 4)
Quarter: 2012Q4

REPORT INFORMATION
  Report Type: 
  Country: US (occurrence: US)
  Receive Date: 20110930
  Receipt Date: 20121106
  Transmission Date: 20130627
  Serious: Yes (Hospitalization, Other)
  Sender: FDA-Public Use
  Company Number: US-009507513-1109USA03246

PATIENT

DRUGS (13)
  1. FOSAMAX [Suspect]
     Indication: OSTEOPENIA
     Dosage: 70 mg, qw
     Route: 048
     Dates: start: 20011106, end: 20060420
  2. FOSAMAX [Suspect]
     Indication: OSTEOPOROSIS
     Dosage: 70 mg, UNK
     Route: 048
     Dates: start: 20090925, end: 20091219
  3. VITAMIN D (UNSPECIFIED) [Concomitant]
  4. CALCIUM (UNSPECIFIED) [Concomitant]
  5. VITAMIN B (UNSPECIFIED) [Concomitant]
     Dosage: UNK
     Dates: end: 200912
  6. OMEGA-3 MARINE TRIGLYCERIDES [Concomitant]
  7. FOSAMAX PLUS D [Suspect]
     Indication: OSTEOPENIA
     Dosage: 70/2800
     Route: 048
     Dates: start: 20060421, end: 20090924
  8. CYTOMEL [Concomitant]
     Indication: HYPOTHYROIDISM
     Dates: start: 20011001
  9. SYNTHROID [Concomitant]
     Indication: HYPOTHYROIDISM
     Dates: start: 200505, end: 200611
  10. ELAVIL (MADE BY MERCK, MARKETED BY ZENECA) [Concomitant]
     Indication: PAIN
     Dates: start: 200107
  11. PIROXICAM [Concomitant]
     Indication: PAIN
     Dates: start: 200505, end: 200702
  12. LEVOTIROXINA S.O [Concomitant]
     Indication: HYPOTHYROIDISM
     Dates: start: 200505, end: 200611
  13. FOSAMAX [Suspect]
     Dosage: 70 mg, qw
     Route: 048
     Dates: start: 20090925

REACTIONS (36)
  - Femur fracture [Recovered/Resolved]
  - Bladder cancer [Unknown]
  - Hypertension [Unknown]
  - Chronic obstructive pulmonary disease [Not Recovered/Not Resolved]
  - Osteoporosis [Unknown]
  - Migraine [Unknown]
  - Fibromyalgia [Unknown]
  - Bursitis [Unknown]
  - Inflammation [Unknown]
  - Scoliosis [Unknown]
  - Tendonitis [Unknown]
  - Ligament sprain [Unknown]
  - Fall [Unknown]
  - Gastrooesophageal reflux disease [Unknown]
  - Large intestine polyp [Unknown]
  - Osteoarthritis [Unknown]
  - Fatigue [Unknown]
  - Dyspnoea [Unknown]
  - Dyspnoea [Unknown]
  - Diarrhoea [Unknown]
  - Constipation [Unknown]
  - Headache [Unknown]
  - Bursitis [Unknown]
  - Aortic valve incompetence [Unknown]
  - Oedema peripheral [Unknown]
  - Dehydration [Unknown]
  - Hypokalaemia [Unknown]
  - Irritable bowel syndrome [Unknown]
  - Lumbar radiculopathy [Unknown]
  - Meniscus injury [Unknown]
  - Synovial cyst [Unknown]
  - Spinal column stenosis [Unknown]
  - Urinary tract infection [Unknown]
  - Uterine prolapse [Unknown]
  - Macular degeneration [Unknown]
  - Vaginal prolapse [Unknown]
